FAERS Safety Report 8337113 (Version 4)
Quarter: 2012Q4

REPORT INFORMATION
  Report Type: 
  Country: JP (occurrence: JP)
  Receive Date: 20120113
  Receipt Date: 20120927
  Transmission Date: 20130627
  Serious: Yes (Hospitalization, Disabling, Other)
  Sender: FDA-Public Use
  Company Number: JP-ROCHE-1029849

PATIENT
  Age: 65 Year
  Sex: Male
  Weight: 60 kg

DRUGS (5)
  1. XELODA [Suspect]
     Indication: COLON CANCER
     Dosage: Dosage is uncertain.
     Route: 048
     Dates: start: 20110126, end: 20110215
  2. XELODA [Suspect]
     Indication: COLON CANCER
     Dosage: It is administer/one weekly holiday medicine for two weeks.
     Route: 048
     Dates: start: 20110216, end: 20110329
  3. XELODA [Suspect]
     Indication: COLON CANCER
     Dosage: It is administer/one weekly holiday medicine for two weeks.
     Route: 048
     Dates: start: 20110330, end: 20110913
  4. ELPLAT [Concomitant]
     Indication: COLON CANCER
     Dosage: Dosage is uncertain.
     Route: 041
     Dates: start: 2011, end: 2011
  5. PYRIDOXAL PHOSPHATE [Concomitant]
     Indication: PROPHYLAXIS
     Route: 048
     Dates: start: 20110126

REACTIONS (7)
  - Multiple sclerosis [Recovered/Resolved with Sequelae]
  - Quadriplegia [Unknown]
  - Bladder disorder [Recovered/Resolved]
  - Anorectal disorder [Recovered/Resolved]
  - Constipation [Unknown]
  - Nausea [Unknown]
  - Malaise [Unknown]
